FAERS Safety Report 5186295-8 (Version None)
Quarter: 2006Q4

REPORT INFORMATION
  Report Type: 
  Country: None (occurrence: None)
  Receive Date: 20061213
  Receipt Date: 20061129
  Transmission Date: 20070319
  Serious: Yes (Disabling, Other)
  Sender: FDA-Public Use
  Company Number: GB-1160054

PATIENT
  Age: 25 Year

DRUGS (4)
  1. MAXIDEX(DEXAMETHASONE) SUSPENSION [Suspect]
     Indication: ANTIINFLAMMATORY THERAPY
     Dosage: EYE DROPS, SUSPENSION, 4/1DAY,OPTHALMIC
     Route: 047
  2. SODIUM PHOSPHATE (SODIUM PHOSPHATE) SOLUTION [Suspect]
     Indication: EYE IRRIGATION
     Dosage: 500 ML AS NECESSARY, EYE DROPS, SOLUTION, OPHTHALMIC
     Route: 047
  3. ASCORBIC ACID [Concomitant]
  4. CHLORAMPHENICOL [Concomitant]

REACTIONS (3)
  - CHEMICAL EYE INJURY [None]
  - CORNEAL OPACITY [None]
  - VISUAL ACUITY REDUCED [None]
